FAERS Safety Report 4411312-X (Version None)
Quarter: 2004Q3

REPORT INFORMATION
  Report Type: 
  Country: None (occurrence: None)
  Receive Date: 20040727
  Receipt Date: 20040715
  Transmission Date: 20050211
  Serious: Yes (Life-Threatening, Hospitalization)
  Sender: FDA-Public Use
  Company Number: CIP04001476

PATIENT
  Age: 49 Year
  Sex: Female

DRUGS (16)
  1. ACTONEL [Suspect]
     Indication: OSTEOPOROSIS
     Dosage: 2.5 MG DAILY, ORAL
     Route: 048
     Dates: start: 20040601, end: 20040705
  2. ELCITONIN (ELCATONIN) [Concomitant]
  3. ALFAROL (ALFACALCIDOL) [Concomitant]
  4. NU-LOTAN (LOSARTAN POTASSIUM) [Concomitant]
  5. PARIET (RABEPRAZOLE SODIUM) [Concomitant]
  6. URSO [Concomitant]
  7. NICARDIPINE HCL [Concomitant]
  8. NEORAL [Concomitant]
  9. MAGNESIUM OXIDE (MAGNESIUM OXIDE) [Concomitant]
  10. DORAL [Concomitant]
  11. AMOBAN (ZOPICLONE) [Concomitant]
  12. WARFARIN (WARFARIN) [Concomitant]
  13. PREDNISOLONE [Concomitant]
  14. MOHRUS (KETOPROFEN) [Concomitant]
  15. ASPIRIN [Concomitant]
  16. NIFLAN (PRANOPROFEN) [Concomitant]

REACTIONS (13)
  - AGRANULOCYTOSIS [None]
  - BACTERIA URINE [None]
  - BLOOD ALKALINE PHOSPHATASE INCREASED [None]
  - BLOOD LACTATE DEHYDROGENASE INCREASED [None]
  - C-REACTIVE PROTEIN INCREASED [None]
  - GAMMA-GLUTAMYLTRANSFERASE INCREASED [None]
  - LYMPHOCYTE COUNT INCREASED [None]
  - NEUTROPHIL COUNT DECREASED [None]
  - PLATELET COUNT DECREASED [None]
  - PROTEIN URINE PRESENT [None]
  - RED BLOOD CELL COUNT DECREASED [None]
  - URINARY OCCULT BLOOD POSITIVE [None]
  - URINE ABNORMALITY [None]
